FAERS Safety Report 9163395 (Version 4)
Quarter: 2013Q2

REPORT INFORMATION
  Report Type: Report from Study
  Country: CH (occurrence: CH)
  Receive Date: 20130314
  Receipt Date: 20130429
  Transmission Date: 20140414
  Serious: Yes (Hospitalization, Other)
  Sender: FDA-Public Use
  Company Number: CH-TEVA-391688USA

PATIENT
  Age: 60 Year
  Sex: Female
  Weight: 53 kg

DRUGS (12)
  1. TREANDA [Suspect]
     Indication: PLASMA CELL MYELOMA
     Route: 042
     Dates: start: 20130212, end: 20130214
  2. TREANDA [Suspect]
     Route: 042
     Dates: start: 20130312
  3. TREANDA [Suspect]
     Route: 042
     Dates: start: 20130409, end: 20130409
  4. REVLIMID [Suspect]
     Indication: PLASMA CELL MYELOMA
     Route: 048
     Dates: start: 20130212, end: 20130227
  5. REVLIMID [Suspect]
     Route: 048
     Dates: start: 20130308, end: 20130312
  6. REVLIMID [Suspect]
     Route: 048
     Dates: start: 20130409
  7. DEXAMETHASONE [Suspect]
     Indication: PLASMA CELL MYELOMA
     Route: 048
     Dates: start: 20130212, end: 20130227
  8. SULFAMETHOXAZOLE W/TRIMETHOPRIM [Concomitant]
     Indication: PROPHYLAXIS
     Dosage: 800MG/160MG
     Route: 048
     Dates: start: 20130212
  9. VALACICLOVIR [Concomitant]
     Indication: PROPHYLAXIS
     Route: 048
     Dates: start: 20130212
  10. DALTEPARIN [Concomitant]
     Indication: THROMBOSIS PROPHYLAXIS
     Dosage: 5000 IE
     Route: 058
     Dates: start: 20130212, end: 20130227
  11. PAMIDRONATE [Concomitant]
     Indication: OSTEOLYSIS
     Dates: start: 20120428
  12. PARACETAMOL [Concomitant]
     Indication: BONE PAIN
     Dosage: 4000 MG/D
     Route: 048
     Dates: start: 20121128, end: 20130227

REACTIONS (5)
  - Neutrophil count decreased [Recovered/Resolved]
  - Platelet count decreased [Not Recovered/Not Resolved]
  - Hepatobiliary disease [Recovered/Resolved]
  - Lung infection [Recovered/Resolved]
  - Febrile neutropenia [Recovered/Resolved]
